FAERS Safety Report 4653619-7 (Version None)
Quarter: 2005Q2

REPORT INFORMATION
  Report Type: 
  Country: None (occurrence: None)
  Receive Date: 20050404
  Receipt Date: 20041116
  Transmission Date: 20051028
  Serious: No
  Sender: FDA-Public Use
  Company Number: US_0411108568

PATIENT
  Age: 82 Year
  Sex: Male

DRUGS (3)
  1. CYMBALTA [Suspect]
     Indication: NEUROPATHY
     Dates: start: 20041101
  2. AVANDIA [Concomitant]
  3. GLUCOTROL [Concomitant]

REACTIONS (4)
  - DRUG INEFFECTIVE [None]
  - FEELING ABNORMAL [None]
  - MIDDLE INSOMNIA [None]
  - STOMACH DISCOMFORT [None]
